FAERS Safety Report 20741214 (Version 1)
Quarter: 2022Q2

REPORT INFORMATION
  Report Type: Spontaneous
  Country: US (occurrence: US)
  Receive Date: 20220422
  Receipt Date: 20220422
  Transmission Date: 20220721
  Serious: Yes (Hospitalization, Other)
  Sender: FDA-Public Use
  Company Number: US-PFIZER INC-202200584907

PATIENT
  Age: 80 Year

DRUGS (1)
  1. XELJANZ [Suspect]
     Active Substance: TOFACITINIB CITRATE
     Dosage: 5 MG

REACTIONS (5)
  - Hypoacusis [Unknown]
  - COVID-19 [Unknown]
  - Pneumonia [Unknown]
  - Mental impairment [Unknown]
  - Asthenia [Unknown]
